FAERS Safety Report 17752802 (Version 1)
Quarter: 2020Q2

REPORT INFORMATION
  Report Type: Spontaneous
  Country: FR (occurrence: FR)
  Receive Date: 20200506
  Receipt Date: 20200506
  Transmission Date: 20200714
  Serious: Yes (Life-Threatening)
  Sender: FDA-Public Use
  Company Number: FR-MYLANLABS-2020M1045203

PATIENT
  Age: 43 Year
  Sex: Male

DRUGS (2)
  1. PLAQUENIL                          /00072602/ [Suspect]
     Active Substance: HYDROXYCHLOROQUINE DIPHOSPHATE
     Indication: CORONAVIRUS INFECTION
     Dosage: UNK
     Dates: start: 20200401
  2. AZITHROMYCIN ANHYDROUS. [Suspect]
     Active Substance: AZITHROMYCIN ANHYDROUS
     Indication: CORONAVIRUS INFECTION
     Dosage: UNK

REACTIONS (4)
  - Ventricular arrhythmia [Unknown]
  - Off label use [Unknown]
  - Product use in unapproved indication [Unknown]
  - Torsade de pointes [Unknown]

NARRATIVE: CASE EVENT DATE: 20200402
